FAERS Safety Report 19065744 (Version 2)
Quarter: 2021Q3

REPORT INFORMATION
  Report Type: Spontaneous
  Country: IN (occurrence: IN)
  Receive Date: 20210327
  Receipt Date: 20210706
  Transmission Date: 20211014
  Serious: Yes (Life-Threatening)
  Sender: FDA-Public Use
  Company Number: IN-NEBO-PC006689

PATIENT
  Age: 65 Year
  Sex: Female
  Weight: 70 kg

DRUGS (3)
  1. TAZLOC CT [Concomitant]
  2. ISOFER [IRON ISOMALTOSIDE 1000] [Suspect]
     Active Substance: IRON ISOMALTOSIDE 1000
     Indication: HAEMOGLOBIN DECREASED
     Route: 041
     Dates: start: 20210322, end: 20210322
  3. MEGAGLIPTIN MF [Concomitant]

REACTIONS (9)
  - Blood pressure decreased [Recovered/Resolved]
  - Feeling cold [Recovered/Resolved]
  - Hyperhidrosis [Recovered/Resolved]
  - Asthenia [Recovered/Resolved]
  - Vomiting [Recovered/Resolved]
  - Dyspnoea [Recovered/Resolved]
  - Sensory loss [Recovered/Resolved]
  - Blood glucose decreased [Recovered/Resolved]
  - Palpitations [Recovered/Resolved]

NARRATIVE: CASE EVENT DATE: 20210322
